FAERS Safety Report 22654734 (Version 1)
Quarter: 2023Q2

REPORT INFORMATION
  Report Type: Spontaneous
  Country: SE (occurrence: SE)
  Receive Date: 20230629
  Receipt Date: 20230629
  Transmission Date: 20230722
  Serious: Yes (Hospitalization, Other)
  Sender: FDA-Public Use
  Company Number: SE-002147023-PHHY2015SE147755

PATIENT
  Age: 67 Year
  Sex: Male
  Weight: 93 kg

DRUGS (4)
  1. VOTRIENT [Suspect]
     Active Substance: PAZOPANIB HYDROCHLORIDE
     Indication: Metastatic renal cell carcinoma
     Dosage: 800 MG, QD
     Route: 048
     Dates: start: 20151022
  2. VOTRIENT [Suspect]
     Active Substance: PAZOPANIB HYDROCHLORIDE
     Dosage: 200 MG, UNK
     Route: 048
  3. VOTRIENT [Suspect]
     Active Substance: PAZOPANIB HYDROCHLORIDE
     Dosage: 400 MG, UNK
     Route: 048
  4. VOTRIENT [Suspect]
     Active Substance: PAZOPANIB HYDROCHLORIDE
     Dosage: 600 MG, UNK
     Route: 048
     Dates: end: 20151028

REACTIONS (7)
  - Chest pain [Recovering/Resolving]
  - Electrocardiogram QT prolonged [Recovering/Resolving]
  - Hypertension [Recovering/Resolving]
  - Arrhythmia [Unknown]
  - Palpitations [Unknown]
  - Dizziness [Unknown]
  - Malaise [Recovering/Resolving]

NARRATIVE: CASE EVENT DATE: 20151028
